FAERS Safety Report 21393289 (Version 2)
Quarter: 2022Q4

REPORT INFORMATION
  Report Type: Spontaneous
  Country: US (occurrence: US)
  Receive Date: 20220929
  Receipt Date: 20221003
  Transmission Date: 20230113
  Serious: Yes (Other)
  Sender: FDA-Public Use
  Company Number: US-JNJFOC-20190539332

PATIENT
  Age: 47 Year
  Sex: Female

DRUGS (39)
  1. VRAYLAR [Suspect]
     Active Substance: CARIPRAZINE
     Indication: Bipolar disorder
     Dosage: 1.5 MG, QD
     Route: 048
  2. SPRAVATO [Suspect]
     Active Substance: ESKETAMINE
     Indication: Depression
     Dosage: ADMIN START: 12:00 HOURS; TREATMENT SESSION END TIME: 14:00 HOURS
     Dates: start: 20191209, end: 20191209
  3. SPRAVATO [Suspect]
     Active Substance: ESKETAMINE
     Dosage: ADMIN START: 12:00 HOURS; TREATMENT SESSION END TIME: 14:00 HOURS
     Dates: start: 20191118, end: 20191118
  4. SPRAVATO [Suspect]
     Active Substance: ESKETAMINE
     Dosage: ADMIN START: 12:00 HOURS; TREATMENT SESSION END TIME: 14:00 HOURS
     Dates: start: 20191104, end: 20191104
  5. SPRAVATO [Suspect]
     Active Substance: ESKETAMINE
     Dosage: ADMIN START: 10:30 HOURS; TREATMENT SESSION END TIME: 12:30 HOURS
     Dates: start: 20191031, end: 20191031
  6. SPRAVATO [Suspect]
     Active Substance: ESKETAMINE
     Dosage: ADMIN START: 14:00 HOURS; TREATMENT SESSION END TIME: 16:00 HOURS
     Dates: start: 20191030, end: 20191030
  7. SPRAVATO [Suspect]
     Active Substance: ESKETAMINE
     Dosage: ADMIN START: 11:30 HOURS; TREATMENT SESSION END TIME: 13:30 HOURS
     Dates: start: 20191024, end: 20191024
  8. SPRAVATO [Suspect]
     Active Substance: ESKETAMINE
     Dosage: ADMIN START: 10:00 HOURS; TREATMENT SESSION END TIME: 12:00 HOURS
     Dates: start: 20191022, end: 20191022
  9. SPRAVATO [Suspect]
     Active Substance: ESKETAMINE
     Dosage: ADMIN START: 09:00 HOURS; TREATMENT SESSION END TIME: 11:00 HOURS
     Dates: start: 20191018, end: 20191018
  10. SPRAVATO [Suspect]
     Active Substance: ESKETAMINE
     Dosage: ADMIN START: 12:00 HOURS; TREATMENT SESSION END TIME: 14:00 HOURS
     Dates: start: 20191009, end: 20191009
  11. SPRAVATO [Suspect]
     Active Substance: ESKETAMINE
     Dosage: ADMIN START: 11:30 HOURS; TREATMENT SESSION END TIME: 13:30 HOURS
     Dates: start: 20191003, end: 20191003
  12. SPRAVATO [Suspect]
     Active Substance: ESKETAMINE
     Dosage: ADMIN START: 11:45 HOURS; TREATMENT SESSION END TIME: 13:45 HOURS
     Dates: start: 20190926, end: 20190926
  13. SPRAVATO [Suspect]
     Active Substance: ESKETAMINE
     Dosage: ADMIN START: 11:45 HOURS; TREATMENT SESSION END TIME: 13:45 HOURS
     Dates: start: 20190924, end: 20190924
  14. SPRAVATO [Suspect]
     Active Substance: ESKETAMINE
     Dosage: ADMIN START: 12:00 HOURS; TREATMENT SESSION END TIME: 14:00 HOURS
     Dates: start: 20190919, end: 20190919
  15. SPRAVATO [Suspect]
     Active Substance: ESKETAMINE
     Dosage: ADMIN START: 12:00 HOURS; TREATMENT SESSION END TIME: 14:00 HOURS
     Dates: start: 20190917, end: 20190917
  16. SPRAVATO [Suspect]
     Active Substance: ESKETAMINE
     Dosage: ADMIN START: 12:00 HOURS; TREATMENT SESSION END TIME: 14:00 HOURS
     Dates: start: 20190905, end: 20190905
  17. SPRAVATO [Suspect]
     Active Substance: ESKETAMINE
     Dosage: ADMIN START: 14:00 HOURS; TREATMENT SESSION END TIME: 16:00 HOURS
     Dates: start: 20190820, end: 20190820
  18. SPRAVATO [Suspect]
     Active Substance: ESKETAMINE
     Dosage: ADMIN START: 13:00 HOURS; TREATMENT SESSION END TIME: 15:00 HOURS
     Dates: start: 20190815, end: 20190815
  19. SPRAVATO [Suspect]
     Active Substance: ESKETAMINE
     Dosage: ADMIN START: 08:00 HOURS; TREATMENT SESSION END TIME: 10:00 HOURS
     Dates: start: 20190813, end: 20190813
  20. SPRAVATO [Suspect]
     Active Substance: ESKETAMINE
     Dosage: ADMIN START: 13:00 HOURS; TREATMENT SESSION END TIME: 15:00 HOURS
     Dates: start: 20190808, end: 20190808
  21. SPRAVATO [Suspect]
     Active Substance: ESKETAMINE
     Dosage: ADMIN START: 09:00 HOURS; TREATMENT SESSION END TIME: 11:00 HOURS
     Dates: start: 20190806, end: 20190806
  22. SPRAVATO [Suspect]
     Active Substance: ESKETAMINE
     Dosage: ADMIN START: 08:30 HOURS; TREATMENT SESSION END TIME: 10:30 HOURS
     Dates: start: 20190731, end: 20190731
  23. SPRAVATO [Suspect]
     Active Substance: ESKETAMINE
     Dosage: ADMIN START: 10:00 HOURS; TREATMENT SESSION END TIME: 12:00 HOURS
     Dates: start: 20190725, end: 20190725
  24. SPRAVATO [Suspect]
     Active Substance: ESKETAMINE
     Dosage: ADMIN START: 12:50 HOURS; TREATMENT SESSION END TIME: 14:50 HOURS
     Dates: start: 20190717, end: 20190717
  25. SPRAVATO [Suspect]
     Active Substance: ESKETAMINE
     Dosage: ADMIN START: 13:30 HOURS; TREATMENT SESSION END TIME: 15:30 HOURS
     Dates: start: 20190708, end: 20190708
  26. SPRAVATO [Suspect]
     Active Substance: ESKETAMINE
     Dosage: ADMIN START: 13:15 HOURS; TREATMENT SESSION END TIME: 15:15 HOURS
     Dates: start: 20190703, end: 20190703
  27. SPRAVATO [Suspect]
     Active Substance: ESKETAMINE
     Dosage: ADMIN START: 10:00 HOURS; TREATMENT SESSION END TIME: 12:00 HOURS
     Dates: start: 20190627, end: 20190627
  28. SPRAVATO [Suspect]
     Active Substance: ESKETAMINE
     Dosage: ADMIN START: 13:00 HOURS; TREATMENT SESSION END TIME: 15:00 HOURS
     Dates: start: 20190625, end: 20190625
  29. SPRAVATO [Suspect]
     Active Substance: ESKETAMINE
     Dosage: ADMIN START: 13:00 HOURS; TREATMENT SESSION END TIME: 15:00 HOURS
     Dates: start: 20190620, end: 20190620
  30. SPRAVATO [Suspect]
     Active Substance: ESKETAMINE
     Dosage: ADMIN START: 13:45 HOURS; TREATMENT SESSION END TIME: 15:45 HOURS
     Dates: start: 20190618, end: 20190618
  31. SPRAVATO [Suspect]
     Active Substance: ESKETAMINE
     Dosage: ADMIN START: 09:00 HOURS; TREATMENT SESSION END TIME: 11:00 HOURS
     Dates: start: 20190614, end: 20190614
  32. SPRAVATO [Suspect]
     Active Substance: ESKETAMINE
     Dosage: ADMIN START: 09:00 HOURS; TREATMENT SESSION END TIME: 11:00 HOURS
     Dates: start: 20190607, end: 20190607
  33. SPRAVATO [Suspect]
     Active Substance: ESKETAMINE
     Dosage: ADMIN START: 13:00 HOURS; TREATMENT SESSION END TIME: 15:00 HOURS
     Dates: start: 20190604, end: 20190604
  34. SPRAVATO [Suspect]
     Active Substance: ESKETAMINE
     Dosage: ADMIN START: 14:30 HOURS; TREATMENT SESSION END TIME: 16:30 HOURS
     Dates: start: 20190530, end: 20190530
  35. SPRAVATO [Suspect]
     Active Substance: ESKETAMINE
     Dosage: ADMIN START: 12:50 HOURS; TREATMENT SESSION END TIME: 14:50 HOURS
     Dates: start: 20190528, end: 20190528
  36. SPRAVATO [Suspect]
     Active Substance: ESKETAMINE
     Dosage: FIRST DOSE; ADMIN START: 12:10 HOURS; TREATMENT SESSION END TIME: 14:10 HOUR
     Dates: start: 20190523, end: 20190523
  37. FOCALIN [Suspect]
     Active Substance: DEXMETHYLPHENIDATE HYDROCHLORIDE
     Indication: Attention deficit hyperactivity disorder
     Dosage: 10 MG, QD
     Route: 048
  38. ADDERALL [Suspect]
     Active Substance: AMPHETAMINE ASPARTATE\AMPHETAMINE SULFATE\DEXTROAMPHETAMINE SACCHARATE\DEXTROAMPHETAMINE SULFATE
     Indication: Attention deficit hyperactivity disorder
     Dosage: 80 MG, QD
     Route: 048
  39. TRINTELLIX [Concomitant]
     Active Substance: VORTIOXETINE HYDROBROMIDE
     Indication: Depression
     Dosage: 40 MG, QD

REACTIONS (10)
  - Road traffic accident [Recovered/Resolved]
  - Altered visual depth perception [Recovered/Resolved]
  - Accident [Recovered/Resolved]
  - Feeling drunk [Recovered/Resolved]
  - Hand-eye coordination impaired [Recovered/Resolved]
  - Speech disorder [Recovered/Resolved]
  - General physical health deterioration [Recovered/Resolved]
  - Clumsiness [Unknown]
  - Throat irritation [Unknown]
  - Somnolence [Unknown]

NARRATIVE: CASE EVENT DATE: 20190524
